FAERS Safety Report 8658874 (Version 3)
Quarter: 2013Q4

REPORT INFORMATION
  Report Type: Spontaneous
  Country: US (occurrence: US)
  Receive Date: 20120710
  Receipt Date: 20131213
  Transmission Date: 20140711
  Serious: Yes (Other)
  Sender: FDA-Public Use
  Company Number: US-US-EMD SERONO, INC.-7144455

PATIENT
  Sex: Female

DRUGS (4)
  1. REBIF [Suspect]
     Indication: PRODUCT USED FOR UNKNOWN INDICATION
     Route: 058
     Dates: start: 20081203, end: 20090327
  2. REBIF [Suspect]
     Route: 058
     Dates: start: 20120215
  3. ADVIL                              /00109201/ [Concomitant]
     Indication: PREMEDICATION
  4. ALEVE                              /00256202/ [Concomitant]
     Indication: PREMEDICATION

REACTIONS (4)
  - Crohn^s disease [Unknown]
  - Arthritis enteropathic [Unknown]
  - Intervertebral disc protrusion [Unknown]
  - Feeling abnormal [Not Recovered/Not Resolved]
